FAERS Safety Report 19251336 (Version 1)
Quarter: 2021Q2

REPORT INFORMATION
  Report Type: Spontaneous
  Country: US (occurrence: US)
  Receive Date: 20210512
  Receipt Date: 20210512
  Transmission Date: 20210717
  Serious: Yes (Hospitalization, Other)
  Sender: FDA-Public Use
  Company Number: US-SUNOVION-2021SUN001567

PATIENT
  Age: 3 Year
  Sex: Female
  Weight: 15.1 kg

DRUGS (11)
  1. IPRATROPIUM [Suspect]
     Active Substance: IPRATROPIUM
     Dosage: 2 DOSES (0.5 MG EACH)
     Route: 065
  2. LEVALBUTEROL TARTRATE. [Suspect]
     Active Substance: LEVALBUTEROL TARTRATE
     Dosage: UNK FOR EVERY HOUR
     Route: 055
  3. ALBUTEROL. [Suspect]
     Active Substance: ALBUTEROL
     Indication: ASTHMA
     Dosage: UNK
     Route: 065
  4. LEVALBUTEROL TARTRATE. [Suspect]
     Active Substance: LEVALBUTEROL TARTRATE
     Indication: ASTHMA
     Dosage: UNK
     Route: 055
  5. FLUTICASONE. [Suspect]
     Active Substance: FLUTICASONE
     Dosage: 44 ?G, BID
     Route: 055
  6. LEVALBUTEROL TARTRATE. [Suspect]
     Active Substance: LEVALBUTEROL TARTRATE
     Dosage: 2 DOSES ((0.63 MG EACH)
     Route: 055
  7. DEXAMETHASONE. [Suspect]
     Active Substance: DEXAMETHASONE
     Dosage: 10 MG
     Route: 048
  8. ALBUTEROL. [Suspect]
     Active Substance: ALBUTEROL
     Dosage: 10 MG/HR
     Route: 055
  9. BUDESONIDE. [Suspect]
     Active Substance: BUDESONIDE
     Dosage: UNK
     Route: 065
  10. PREDNISOLONE. [Suspect]
     Active Substance: PREDNISOLONE
     Dosage: 15 MG, QD
     Route: 048
  11. LEVALBUTEROL TARTRATE. [Suspect]
     Active Substance: LEVALBUTEROL TARTRATE
     Dosage: 0.63 MG/EVERY 2 HRS
     Route: 055

REACTIONS (4)
  - Wolff-Parkinson-White syndrome [Recovered/Resolved]
  - Hypotension [Recovered/Resolved]
  - Heart rate increased [Recovered/Resolved]
  - Supraventricular tachycardia [Recovered/Resolved]
